FAERS Safety Report 25336921 (Version 1)
Quarter: 2025Q2

REPORT INFORMATION
  Report Type: Spontaneous
  Country: US (occurrence: US)
  Receive Date: 20250520
  Receipt Date: 20250520
  Transmission Date: 20250717
  Serious: No
  Sender: INSUD PHARMA
  Company Number: US-INSUD PHARMA-2505US03535

PATIENT

DRUGS (1)
  1. ESTARYLLA [Suspect]
     Active Substance: ETHINYL ESTRADIOL\NORGESTIMATE
     Indication: Contraception
     Route: 048
     Dates: start: 2024

REACTIONS (1)
  - Menstrual disorder [Recovered/Resolved]

NARRATIVE: CASE EVENT DATE: 20240101
